FAERS Safety Report 8603028-0 (Version None)
Quarter: 2012Q3

REPORT INFORMATION
  Report Type: 
  Country: None (occurrence: None)
  Receive Date: 20120817
  Receipt Date: 20120618
  Transmission Date: 20120928
  Serious: Yes (Other)
  Sender: FDA-Public Use
  Company Number: US-GLAXOSMITHKLINE-A0981553A

PATIENT
  Age: 46 Year
  Sex: Female

DRUGS (2)
  1. PREMARIN [Concomitant]
  2. VOTRIENT [Suspect]
     Indication: SARCOMA
     Dosage: 800MG AT NIGHT
     Route: 048
     Dates: start: 20120525

REACTIONS (1)
  - EMBOLISM VENOUS [None]
